FAERS Safety Report 6019573-0 (Version None)
Quarter: 2008Q4

REPORT INFORMATION
  Report Type: 
  Country: None (occurrence: None)
  Receive Date: 20081224
  Receipt Date: 20081215
  Transmission Date: 20090506
  Serious: Yes (Other)
  Sender: FDA-Public Use
  Company Number: PHEH2008US11137

PATIENT
  Age: 67 Year
  Sex: Female

DRUGS (3)
  1. DIOVAN [Suspect]
     Dosage: 160 UNK, UNK
  2. DIOVAN [Suspect]
     Dosage: 40 MG, UNK
  3. DIOVAN HCT [Suspect]
     Dosage: 160/12.5
     Route: 048

REACTIONS (3)
  - BLOOD PRESSURE SYSTOLIC DECREASED [None]
  - DRUG HYPERSENSITIVITY [None]
  - HYPERTENSION [None]
